FAERS Safety Report 7628385-3 (Version None)
Quarter: 2011Q3

REPORT INFORMATION
  Report Type: 
  Country: None (occurrence: None)
  Receive Date: 20110722
  Receipt Date: 20110719
  Transmission Date: 20111222
  Serious: No
  Sender: FDA-Public Use
  Company Number: US-PFIZER INC-2011163683

PATIENT
  Sex: Female
  Weight: 87.075 kg

DRUGS (6)
  1. AMBIEN [Concomitant]
     Dosage: UNK
  2. PRISTIQ [Suspect]
     Indication: DEPRESSION
     Dosage: UNK, 2X/DAY
     Dates: start: 20110601, end: 20110601
  3. CRESTOR [Concomitant]
     Dosage: UNK
  4. RITALIN [Concomitant]
     Dosage: UNK
  5. METFORMIN [Concomitant]
     Indication: DIABETES MELLITUS
     Dosage: UNK
  6. NARDIL [Suspect]
     Indication: DEPRESSION
     Dosage: 15 MG, 1X/DAY
     Route: 048
     Dates: start: 20110601

REACTIONS (4)
  - IRRITABILITY [None]
  - INSOMNIA [None]
  - DEPRESSION [None]
  - DRUG EFFECT DECREASED [None]
